FAERS Safety Report 12979217 (Version 2)
Quarter: 2016Q4

REPORT INFORMATION
  Report Type: Report from Study
  Country: US (occurrence: US)
  Receive Date: 20161128
  Receipt Date: 20161212
  Transmission Date: 20170207
  Serious: Yes (Other)
  Sender: FDA-Public Use
  Company Number: US-JNJFOC-20161121683

PATIENT
  Age: 29 Year
  Sex: Male
  Weight: 92.99 kg

DRUGS (5)
  1. REMICADE [Suspect]
     Active Substance: INFLIXIMAB
     Indication: CROHN^S DISEASE
     Route: 042
     Dates: start: 201606
  2. REMICADE [Suspect]
     Active Substance: INFLIXIMAB
     Indication: CROHN^S DISEASE
     Route: 042
     Dates: start: 201202
  3. REMICADE [Suspect]
     Active Substance: INFLIXIMAB
     Indication: CROHN^S DISEASE
     Route: 042
  4. REMICADE [Suspect]
     Active Substance: INFLIXIMAB
     Indication: CROHN^S DISEASE
     Route: 042
     Dates: end: 201508
  5. SOLU-MEDROL [Concomitant]
     Active Substance: METHYLPREDNISOLONE SODIUM SUCCINATE
     Route: 065

REACTIONS (9)
  - Drug level below therapeutic [Unknown]
  - Abscess intestinal [Unknown]
  - Off label use [Unknown]
  - Crohn^s disease [Unknown]
  - Product use issue [Unknown]
  - Drug intolerance [Unknown]
  - Fistula [Unknown]
  - Pregnancy of partner [Unknown]
  - Drug dose omission [Unknown]

NARRATIVE: CASE EVENT DATE: 201508
